FAERS Safety Report 6060999-7 (Version None)
Quarter: 2009Q1

REPORT INFORMATION
  Report Type: 
  Country: None (occurrence: None)
  Receive Date: 20090202
  Receipt Date: 20090121
  Transmission Date: 20090719
  Serious: Yes (Death)
  Sender: FDA-Public Use
  Company Number: US-JNJFOC-20090106598

PATIENT
  Sex: Female
  Weight: 50.35 kg

DRUGS (3)
  1. FENTANYL-75 [Suspect]
     Indication: DRUG USE FOR UNKNOWN INDICATION
     Route: 065
  2. ZOLOFT [Concomitant]
     Route: 065
  3. DILAUDID [Concomitant]
     Route: 065

REACTIONS (4)
  - DROWNING [None]
  - DRUG LEVEL INCREASED [None]
  - DRUG TOXICITY [None]
  - HYPERTENSIVE HEART DISEASE [None]
